FAERS Safety Report 8774805 (Version 2)
Quarter: 2013Q2

REPORT INFORMATION
  Report Type: Spontaneous
  Country: US (occurrence: US)
  Receive Date: 20120910
  Receipt Date: 20130402
  Transmission Date: 20140414
  Serious: Yes (Other)
  Sender: FDA-Public Use
  Company Number: US-BAYER-2012-093456

PATIENT
  Age: 52 Year
  Sex: Female
  Weight: 67.12 kg

DRUGS (12)
  1. YAZ [Suspect]
     Indication: CONTRACEPTION
     Dosage: UNK
     Dates: start: 200706, end: 20101210
  2. LEVAQUIN [Concomitant]
     Dosage: 500 MG, QD DAILY
     Route: 048
  3. NASACORT AQ [Concomitant]
     Dosage: 55 MCG, 2 SPRAYS ONCE DAILY
     Route: 045
  4. TRIAZ [Concomitant]
     Dosage: 6 %, UNK
     Route: 061
  5. HYDRO FOAM [Concomitant]
     Dosage: 35 %, UNK
     Route: 061
  6. BENZONATATE [Concomitant]
     Dosage: 200 MG, EVERY EIGHT HOURS AS NEEDED
     Route: 048
  7. CLARITHROMYCIN XL [Concomitant]
     Dosage: 500 MG, BID, DAILY
     Route: 048
  8. SODIUM TETRADECYL SULFATE [Concomitant]
     Dosage: 3 %,1 CC GIVEN THREE TIMES AT ONE MINUTE INTERVALS
     Dates: start: 20101202
  9. SODIUM TETRADECYL SULFATE [Concomitant]
     Dosage: 0.33 %, UNK
     Dates: start: 20101209
  10. SODIUM CHLORIDE [Concomitant]
     Dosage: 23.4 %, UNK
     Dates: start: 20101202
  11. ETHANOL [Concomitant]
     Dosage: 1 CC
     Dates: start: 20101202
  12. BENZACLIN CAREKIT [Concomitant]
     Dosage: 1-5% [AS WRITTEN] ONCE DAILY

REACTIONS (7)
  - Pulmonary embolism [Recovered/Resolved]
  - Deep vein thrombosis [None]
  - Peripheral artery thrombosis [None]
  - Injury [Recovered/Resolved]
  - Pain [Recovered/Resolved]
  - Emotional distress [None]
  - Pain [None]
